FAERS Safety Report 6237250-8 (Version None)
Quarter: 2009Q2

REPORT INFORMATION
  Report Type: 
  Country: None (occurrence: None)
  Receive Date: 20090619
  Receipt Date: 20090219
  Transmission Date: 20091009
  Serious: No
  Sender: FDA-Public Use
  Company Number: US-BAYER-200910636BCC

PATIENT
  Age: 71 Year
  Sex: Female
  Weight: 71 kg

DRUGS (3)
  1. ALEVE [Suspect]
     Indication: PAIN IN EXTREMITY
     Dosage: BOTTLE COUNT 100 - 2 OR 3 A DAY AND 1 IN THE MIDDLE OF THE NIGHT
     Dates: start: 20090113, end: 20090219
  2. FLEXERIL [Concomitant]
  3. CENTRUM [Concomitant]

REACTIONS (1)
  - BREAST TENDERNESS [None]
